FAERS Safety Report 15306289 (Version 1)
Quarter: 2018Q3

REPORT INFORMATION
  Report Type: Spontaneous
  Country: DE (occurrence: DE)
  Receive Date: 20180822
  Receipt Date: 20180822
  Transmission Date: 20181010
  Serious: Yes (Hospitalization)
  Sender: FDA-Public Use
  Company Number: DE-BAUSCH-BL-2018-022495

PATIENT
  Age: 63 Year
  Sex: Female
  Weight: 77 kg

DRUGS (9)
  1. PREDNISOLONE. [Suspect]
     Active Substance: PREDNISOLONE
     Route: 065
     Dates: start: 20160718, end: 20160722
  2. AIN457 [Suspect]
     Active Substance: SECUKINUMAB
     Indication: PSORIATIC ARTHROPATHY
     Dosage: 150 MG/ML, WEEK 16
     Route: 058
  3. AIN457 [Suspect]
     Active Substance: SECUKINUMAB
     Dosage: 150 MG/ML, Q4W
     Route: 058
     Dates: end: 20160604
  4. BISOPROLOL [Concomitant]
     Active Substance: BISOPROLOL
     Indication: HYPERTENSION
     Route: 065
     Dates: start: 20150817, end: 20160501
  5. METHYLPREDNISOLONE. [Concomitant]
     Active Substance: METHYLPREDNISOLONE
     Indication: ALOPECIA AREATA
     Route: 065
     Dates: start: 20160802, end: 20160803
  6. PREDNISOLONE. [Suspect]
     Active Substance: PREDNISOLONE
     Indication: ALOPECIA AREATA
     Route: 065
     Dates: start: 20160708, end: 20160712
  7. PREDNISOLONE. [Suspect]
     Active Substance: PREDNISOLONE
     Route: 065
     Dates: start: 20160713, end: 20160717
  8. PREDNISOLONE. [Suspect]
     Active Substance: PREDNISOLONE
     Route: 065
     Dates: start: 20160728, end: 20160801
  9. PANTOPRAZOL [Concomitant]
     Active Substance: PANTOPRAZOLE SODIUM
     Indication: PROPHYLAXIS
     Route: 065
     Dates: start: 20160802, end: 20160803

REACTIONS (1)
  - Hypertensive crisis [Recovered/Resolved with Sequelae]

NARRATIVE: CASE EVENT DATE: 20160801
